FAERS Safety Report 8615838-4 (Version None)
Quarter: 2012Q3

REPORT INFORMATION
  Report Type: 
  Country: None (occurrence: None)
  Receive Date: 20120823
  Receipt Date: 20120820
  Transmission Date: 20120928
  Serious: Yes (Other)
  Sender: FDA-Public Use
  Company Number: PHHY2012FR072373

PATIENT
  Sex: Male
  Weight: 82 kg

DRUGS (11)
  1. METFORMIN HCL [Suspect]
     Dosage: UNK UKN, UNK
     Route: 048
     Dates: start: 20120113
  2. ALFUZOSIN HYDROCHLORIDE [Concomitant]
     Dosage: 10 MG IN EVENING, UNK
  3. DESLORATADINE [Concomitant]
     Dosage: 1 DF IN MORNING, UNK
  4. ALDACTONE [Concomitant]
     Dosage: 12.5 MG IN MORNING, UNK
  5. TAXOTERE [Concomitant]
     Indication: PROSTATE CANCER
     Dosage: 1 DF EVERY 3 WEEKS, UNK
     Dates: start: 20100101
  6. LEUPROLIDE ACETATE [Concomitant]
     Dosage: 11.25 MG EVERY 3 MONTHS, UNK
  7. ATORVASTATIN [Suspect]
     Dosage: 40 MG, QD
     Dates: start: 20120113
  8. PLAVIX [Concomitant]
     Dosage: 75 MG IN EVENING, UNK
  9. FUROSEMIDE [Concomitant]
     Dosage: 20 MG IN MORNING, UNK
  10. BISOPROLOL FUMARATE [Concomitant]
     Dosage: 2.5 MG IN MORNING, UNK
  11. PERINDOPRIL ERBUMINE [Concomitant]
     Dosage: 10 MG IN MORNING, UNK

REACTIONS (2)
  - WRONG TECHNIQUE IN DRUG USAGE PROCESS [None]
  - MEDICATION RESIDUE [None]
